FAERS Safety Report 15234645 (Version 1)
Quarter: 2018Q3

REPORT INFORMATION
  Report Type: Report from Study
  Country: JP (occurrence: JP)
  Receive Date: 20180803
  Receipt Date: 20180803
  Transmission Date: 20181010
  Serious: Yes (Death)
  Sender: FDA-Public Use
  Company Number: JP-BEH-2018093396

PATIENT
  Age: 84 Year
  Sex: Male
  Weight: 53.9 kg

DRUGS (13)
  1. XYZAL [Concomitant]
     Active Substance: LEVOCETIRIZINE DIHYDROCHLORIDE
     Dosage: UNK
     Route: 048
     Dates: end: 20171224
  2. BERIPLEX P/N [Suspect]
     Active Substance: COAGULATION FACTOR IX HUMAN\COAGULATION FACTOR VII HUMAN\COAGULATION FACTOR X HUMAN\PROTEIN C\PROTEIN S HUMAN\PROTHROMBIN
     Indication: HAEMORRHAGE
     Dosage: 1400 IU, UNK
     Route: 042
     Dates: start: 20171225
  3. FAMOTIDINE. [Concomitant]
     Active Substance: FAMOTIDINE
     Dosage: UNK
     Route: 048
     Dates: end: 20171224
  4. OMEPRAZOLE. [Concomitant]
     Active Substance: OMEPRAZOLE
     Dosage: UNK
     Route: 065
     Dates: start: 20171225, end: 20171225
  5. CLARITHROMYCIN. [Concomitant]
     Active Substance: CLARITHROMYCIN
     Dosage: UNK
     Route: 048
     Dates: end: 20171224
  6. KAYTWO N [Concomitant]
     Active Substance: MENATETRENONE
     Indication: PROCOAGULANT THERAPY
     Dosage: 10 MG, UNK
     Route: 042
     Dates: start: 20171225, end: 20171225
  7. CARBAZOCHROME [Concomitant]
     Active Substance: CARBAZOCHROME
     Dosage: UNK
     Route: 065
     Dates: start: 20171226, end: 20171226
  8. WARFARIN [Concomitant]
     Active Substance: WARFARIN
     Indication: ANTICOAGULANT THERAPY
  9. KN REPLACEMENT                     /00203501/ [Concomitant]
     Dosage: UNK
     Route: 065
     Dates: start: 20171225, end: 20171226
  10. NICARDIPINE [Concomitant]
     Active Substance: NICARDIPINE
     Dosage: UNK
     Route: 065
     Dates: start: 20171225, end: 20171225
  11. WARFARIN [Concomitant]
     Active Substance: WARFARIN
     Indication: ATRIAL FIBRILLATION
     Dosage: 2 MG, UNK
     Route: 048
     Dates: end: 20171225
  12. ARTIST [Concomitant]
     Active Substance: CARVEDILOL
     Dosage: UNK
     Route: 048
     Dates: end: 20171224
  13. VERAPAMIL [Concomitant]
     Active Substance: VERAPAMIL HYDROCHLORIDE
     Dosage: UNK
     Route: 048
     Dates: end: 20171224

REACTIONS (1)
  - Death [Fatal]
